FAERS Safety Report 17140603 (Version 1)
Quarter: 2019Q4

REPORT INFORMATION
  Report Type: Report from Study
  Country: US (occurrence: US)
  Receive Date: 20191211
  Receipt Date: 20191211
  Transmission Date: 20200122
  Serious: Yes (Death)
  Sender: FDA-Public Use
  Company Number: US-ROCHE-2482177

PATIENT
  Sex: Female
  Weight: 86.2 kg

DRUGS (3)
  1. PROVENTIL [Concomitant]
     Active Substance: ALBUTEROL
  2. NORVASC [Concomitant]
     Active Substance: AMLODIPINE BESYLATE
  3. OCREVUS [Suspect]
     Active Substance: OCRELIZUMAB
     Indication: MULTIPLE SCLEROSIS
     Dosage: 2ND INFUSION NOT GIVEN DUE TO SOB PRIOR TO INFUSION
     Route: 065
     Dates: start: 20180426

REACTIONS (1)
  - Urosepsis [Fatal]
